FAERS Safety Report 19106263 (Version 1)
Quarter: 2021Q2

REPORT INFORMATION
  Report Type: Spontaneous
  Country: SA (occurrence: SA)
  Receive Date: 20210408
  Receipt Date: 20210408
  Transmission Date: 20210717
  Serious: Yes (Other)
  Sender: FDA-Public Use
  Company Number: SA-LUPIN PHARMACEUTICALS INC.-2021-04355

PATIENT
  Age: 47 Year
  Sex: Male

DRUGS (8)
  1. CEFTRIAXONE. [Suspect]
     Active Substance: CEFTRIAXONE
     Indication: COVID-19 PNEUMONIA
     Dosage: UNK, STARTED ON DAY 1 OF ICU ADMISSION
     Route: 065
  2. NOREPINEPHRINE. [Concomitant]
     Active Substance: NOREPINEPHRINE
     Indication: SHOCK
     Dosage: UNK
     Route: 065
  3. AZITHROMYCIN ANHYDROUS. [Suspect]
     Active Substance: AZITHROMYCIN ANHYDROUS
     Indication: COVID-19 PNEUMONIA
     Dosage: UNK, STARTED ON DAY 1 OF ICU ADMISSION
     Route: 065
  4. DEXAMETHASONE. [Suspect]
     Active Substance: DEXAMETHASONE
     Indication: COVID-19 PNEUMONIA
     Dosage: UNK, STARTED ON DAY 1 OF ICU ADMISSION
     Route: 065
  5. INTERFERON BETA 1B [Suspect]
     Active Substance: INTERFERON BETA-1B
     Indication: COVID-19 PNEUMONIA
     Dosage: UNK, STARTED ON DAY 1 OF ICU ADMISSION
     Route: 065
  6. ENOXAPARIN SODIUM. [Concomitant]
     Active Substance: ENOXAPARIN SODIUM
     Indication: ANTICOAGULANT THERAPY
     Dosage: 80 MILLIGRAM, BID, ADJUSTED TO A THERAPEUTIC DOSE (80 MG TWICE DAILY)
     Route: 065
  7. ALTEPLASE. [Concomitant]
     Active Substance: ALTEPLASE
     Indication: DRUG THERAPY
     Dosage: 100 MILLIGRAM, OVER 2H
     Route: 065
  8. RIBAVIRIN. [Suspect]
     Active Substance: RIBAVIRIN
     Indication: COVID-19 PNEUMONIA
     Dosage: UNK, STARTED ON DAY 1 OF ICU ADMISSION
     Route: 065

REACTIONS (1)
  - Off label use [Unknown]
